FAERS Safety Report 18230408 (Version 1)
Quarter: 2020Q3

REPORT INFORMATION
  Report Type: Spontaneous
  Country: US (occurrence: US)
  Receive Date: 20200903
  Receipt Date: 20200903
  Transmission Date: 20201103
  Serious: Yes (Other)
  Sender: FDA-Public Use
  Company Number: NVSC2020US241722

PATIENT
  Age: 58 Year
  Sex: Female

DRUGS (3)
  1. BEVACIZUMAB. [Suspect]
     Active Substance: BEVACIZUMAB
     Indication: CHOLANGIOCARCINOMA
     Dosage: UNK (FIRST LINE REGIMEN)
     Route: 065
  2. IVOSIDENIB [Suspect]
     Active Substance: IVOSIDENIB
     Indication: CHOLANGIOCARCINOMA
     Dosage: UNK(FIRST LINE REGIMEN)
     Route: 065
  3. TRAMETINIB [Suspect]
     Active Substance: TRAMETINIB
     Indication: CHOLANGIOCARCINOMA
     Dosage: UNK (FIRST LINE REGIMEN)
     Route: 065

REACTIONS (3)
  - Cholangiocarcinoma [Unknown]
  - Malignant neoplasm progression [Unknown]
  - Product use in unapproved indication [Unknown]
